FAERS Safety Report 5163735-1 (Version None)
Quarter: 2006Q4

REPORT INFORMATION
  Report Type: 
  Country: None (occurrence: None)
  Receive Date: 20061127
  Receipt Date: 20061127
  Transmission Date: 20070319
  Serious: Yes (Hospitalization)
  Sender: FDA-Public Use
  Company Number: None

PATIENT
  Age: 55 Year
  Sex: Female

DRUGS (2)
  1. AMPHOTERICIN B [Suspect]
     Indication: CRYPTOCOCCOSIS
  2. FLUCYTOSINE [Suspect]
     Indication: CRYPTOCOCCOSIS

REACTIONS (10)
  - ABNORMAL BEHAVIOUR [None]
  - CARDIAC FAILURE CONGESTIVE [None]
  - CARDIOGENIC SHOCK [None]
  - DRUG TOXICITY [None]
  - ISCHAEMIA [None]
  - MENTAL STATUS CHANGES [None]
  - NAUSEA [None]
  - RESPIRATORY FAILURE [None]
  - RETCHING [None]
  - VIRAL INFECTION [None]
